FAERS Safety Report 17080785 (Version 1)
Quarter: 2019Q4

REPORT INFORMATION
  Report Type: Spontaneous
  Country: US (occurrence: US)
  Receive Date: 20191029
  Receipt Date: 20191029
  Transmission Date: 20200122
  Serious: No
  Sender: FDA-Public Use
  Company Number: None

PATIENT
  Age: 71 Month
  Sex: Male
  Weight: 72.57 kg

DRUGS (13)
  1. MAGNESIUM [Concomitant]
     Active Substance: MAGNESIUM
  2. MULTIVITAMIN [Concomitant]
     Active Substance: VITAMINS
  3. LEVOTHYROXINE. [Concomitant]
     Active Substance: LEVOTHYROXINE
  4. VIT. D [Concomitant]
  5. METOPROLOL SUCC [Concomitant]
     Active Substance: METOPROLOL SUCCINATE
  6. POTASSIUM CIT. [Concomitant]
  7. ZINC. [Concomitant]
     Active Substance: ZINC
  8. ELIQUIS [Concomitant]
     Active Substance: APIXABAN
  9. ROSUVASTATIN. [Concomitant]
     Active Substance: ROSUVASTATIN
  10. BREO ELLIPTA [Concomitant]
     Active Substance: FLUTICASONE FUROATE\VILANTEROL TRIFENATATE
  11. CELEBREX [Concomitant]
     Active Substance: CELECOXIB
  12. DUPIXENT [Suspect]
     Active Substance: DUPILUMAB
     Indication: NASAL POLYPS
     Dosage: ?          QUANTITY:300 MG MILLIGRAM(S);?
     Route: 058
     Dates: start: 20190824, end: 20191005
  13. MONELUKAST [Concomitant]
     Active Substance: MONTELUKAST SODIUM

REACTIONS (11)
  - Myalgia [None]
  - Pain [None]
  - Back pain [None]
  - Arthralgia [None]
  - Musculoskeletal pain [None]
  - Dizziness [None]
  - Headache [None]
  - Impaired work ability [None]
  - Loss of personal independence in daily activities [None]
  - Pain in extremity [None]
  - Impaired driving ability [None]

NARRATIVE: CASE EVENT DATE: 20190824
